FAERS Safety Report 12327139 (Version 3)
Quarter: 2016Q2

REPORT INFORMATION
  Report Type: Spontaneous
  Country: PT (occurrence: PT)
  Receive Date: 20160503
  Receipt Date: 20160511
  Transmission Date: 20160815
  Serious: Yes (Other)
  Sender: FDA-Public Use
  Company Number: PT-ROCHE-1747423

PATIENT
  Sex: Female
  Weight: 65 kg

DRUGS (7)
  1. KADCYLA [Suspect]
     Active Substance: ADO-TRASTUZUMAB EMTANSINE
     Dosage: CYCLE 6, DOSE: 204 MG
     Route: 042
     Dates: start: 20150729
  2. KADCYLA [Suspect]
     Active Substance: ADO-TRASTUZUMAB EMTANSINE
     Indication: HER-2 POSITIVE BREAST CANCER
     Dosage: 100 MG AMPOULES: N1020B14 AND N1013B03 AND 160 MG AMPOULES: N1021B02?CYCLE 1 AND CYCLE 2; DOSE: 262
     Route: 042
     Dates: start: 20150415, end: 20150506
  3. KADCYLA [Suspect]
     Active Substance: ADO-TRASTUZUMAB EMTANSINE
     Dosage: CYCLE 3, DOSE: 210 MG
     Route: 042
     Dates: start: 20150527
  4. KADCYLA [Suspect]
     Active Substance: ADO-TRASTUZUMAB EMTANSINE
     Dosage: CYCLE 8, DOSE: 195 MG
     Route: 042
     Dates: start: 20150909
  5. KADCYLA [Suspect]
     Active Substance: ADO-TRASTUZUMAB EMTANSINE
     Dosage: CYCLE 4, DOSE: 204 MG
     Route: 042
     Dates: start: 20150617
  6. KADCYLA [Suspect]
     Active Substance: ADO-TRASTUZUMAB EMTANSINE
     Dosage: CYCLE 5, DOSE: 204 MG
     Route: 042
     Dates: start: 20150708
  7. KADCYLA [Suspect]
     Active Substance: ADO-TRASTUZUMAB EMTANSINE
     Dosage: CYCLE 7, DOSE: 204 MG
     Route: 042
     Dates: start: 20150819

REACTIONS (5)
  - Diarrhoea [Recovered/Resolved]
  - Weight decreased [Recovered/Resolved]
  - Fatigue [Not Recovered/Not Resolved]
  - Nausea [Recovered/Resolved]
  - Asthenia [Recovered/Resolved]
